FAERS Safety Report 25080298 (Version 3)
Quarter: 2025Q3

REPORT INFORMATION
  Report Type: Report from Study
  Country: US (occurrence: US)
  Receive Date: 20250315
  Receipt Date: 20250824
  Transmission Date: 20251021
  Serious: Yes (Other)
  Sender: ABBVIE
  Company Number: US-ABBVIE-6171423

PATIENT
  Age: 39 Year
  Sex: Female

DRUGS (1)
  1. HUMIRA [Suspect]
     Active Substance: ADALIMUMAB
     Indication: Hidradenitis
     Route: 058
     Dates: start: 20240430

REACTIONS (5)
  - Gallbladder operation [Recovering/Resolving]
  - Hidradenitis [Recovering/Resolving]
  - Wound haemorrhage [Unknown]
  - Gait inability [Unknown]
  - Inguinal mass [Unknown]

NARRATIVE: CASE EVENT DATE: 20250219
